FAERS Safety Report 5137266-9 (Version None)
Quarter: 2006Q4

REPORT INFORMATION
  Report Type: 
  Country: None (occurrence: None)
  Receive Date: 20061030
  Receipt Date: 20051003
  Transmission Date: 20070319
  Serious: No
  Sender: FDA-Public Use
  Company Number: US-GLAXOSMITHKLINE-A0576687A

PATIENT
  Age: 71 Year
  Sex: Female

DRUGS (3)
  1. ADVAIR HFA [Suspect]
     Indication: ASTHMA
     Dosage: 1PUFF PER DAY
     Route: 055
     Dates: start: 20030101
  2. BISMUTH [Suspect]
     Route: 065
  3. ALBUTEROL [Concomitant]

REACTIONS (5)
  - BACK PAIN [None]
  - CHEST PAIN [None]
  - PAIN IN EXTREMITY [None]
  - PHARMACEUTICAL PRODUCT COMPLAINT [None]
  - TONGUE BLACK HAIRY [None]
